FAERS Safety Report 18014033 (Version 2)
Quarter: 2020Q3

REPORT INFORMATION
  Report Type: Spontaneous
  Country: DE (occurrence: DE)
  Receive Date: 20200713
  Receipt Date: 20200721
  Transmission Date: 20201103
  Serious: Yes (Other)
  Sender: FDA-Public Use
  Company Number: DE-MYLANLABS-2020M1062110

PATIENT
  Age: 1 Day
  Sex: Female
  Weight: 2.68 kg

DRUGS (3)
  1. GAVISCON ADVANCE PFEFFERMINZ [Concomitant]
     Indication: DYSPEPSIA
     Dosage: UNK, PRN
     Route: 064
  2. IBUPROFEN. [Concomitant]
     Active Substance: IBUPROFEN
     Indication: HEADACHE
     Dosage: 600 MILLIGRAM, PRN, 600 [MG/D (B.BED.) ]
     Route: 064
  3. CITALOPRAM [Suspect]
     Active Substance: CITALOPRAM HYDROBROMIDE
     Indication: DEPRESSION
     Dosage: 20 [MG/D ]
     Route: 064
     Dates: start: 20190115, end: 20191027

REACTIONS (3)
  - Nodal arrhythmia [Recovered/Resolved]
  - Foetal exposure during pregnancy [Recovered/Resolved]
  - Small for dates baby [Recovered/Resolved]

NARRATIVE: CASE EVENT DATE: 20191027
